FAERS Safety Report 25570250 (Version 1)
Quarter: 2025Q3

REPORT INFORMATION
  Report Type: Spontaneous
  Country: US (occurrence: US)
  Receive Date: 20250717
  Receipt Date: 20250717
  Transmission Date: 20251021
  Serious: Yes (Hospitalization)
  Sender: Haleon PLC
  Company Number: US-HALEON-2252704

PATIENT
  Age: 64 Year
  Sex: Female

DRUGS (2)
  1. DICLOFENAC [Suspect]
     Active Substance: DICLOFENAC
     Indication: Back pain
  2. DICLOFENAC [Suspect]
     Active Substance: DICLOFENAC
     Route: 048

REACTIONS (9)
  - Stress cardiomyopathy [Unknown]
  - Drug hypersensitivity [Unknown]
  - Vomiting [Unknown]
  - Asthenia [Unknown]
  - Dyspnoea [Unknown]
  - Chest discomfort [Unknown]
  - Eosinophilia [Unknown]
  - Nausea [Unknown]
  - Pruritus [Unknown]
